FAERS Safety Report 22202217 (Version 1)
Quarter: 2023Q2

REPORT INFORMATION
  Report Type: Spontaneous
  Country: US (occurrence: None)
  Receive Date: 20230411
  Receipt Date: 20230411
  Transmission Date: 20230721
  Serious: No
  Sender: FDA-Public Use
  Company Number: None

PATIENT
  Age: 71 Year
  Sex: Female
  Weight: 45.36 kg

DRUGS (7)
  1. NEUTROGENA ULTRA SHEER DRY TOUCH SUNSCREEN BROAD SPECTRUM SPF 70 [Suspect]
     Active Substance: AVOBENZONE\HOMOSALATE\OCTISALATE\OCTOCRYLENE
     Indication: Prophylaxis against solar radiation
     Dates: start: 20230310, end: 20230318
  2. VITAMINS [Concomitant]
     Active Substance: VITAMINS
  3. calcium supplement [Concomitant]
  4. VITAMIN D NOS [Concomitant]
     Active Substance: VITAMIN D NOS
  5. iron supplement [Concomitant]
  6. b-complex supplement [Concomitant]
  7. ALLEGRA [Concomitant]
     Active Substance: FEXOFENADINE HYDROCHLORIDE

REACTIONS (8)
  - Rash [None]
  - Application site erythema [None]
  - Application site discolouration [None]
  - Application site pain [None]
  - Application site pain [None]
  - Product formulation issue [None]
  - Skin injury [None]
  - Endocrine disorder [None]

NARRATIVE: CASE EVENT DATE: 20230310
